FAERS Safety Report 4971466-3 (Version None)
Quarter: 2006Q2

REPORT INFORMATION
  Report Type: 
  Country: None (occurrence: None)
  Receive Date: 20060406
  Receipt Date: 20060329
  Transmission Date: 20061013
  Serious: Yes (Death)
  Sender: FDA-Public Use
  Company Number: 2006RL000108

PATIENT
  Age: 66 Year
  Sex: Female

DRUGS (1)
  1. NIZATIDINE [Suspect]
     Dosage: PO
     Route: 048

REACTIONS (2)
  - SEPSIS [None]
  - TOXIC EPIDERMAL NECROLYSIS [None]
